FAERS Safety Report 16926445 (Version 1)
Quarter: 2019Q4

REPORT INFORMATION
  Report Type: Spontaneous
  Country: US (occurrence: US)
  Receive Date: 20191016
  Receipt Date: 20191016
  Transmission Date: 20200122
  Serious: No
  Sender: FDA-Public Use
  Company Number: US-SA-2019SA283576

PATIENT
  Age: 49 Year
  Sex: Male

DRUGS (1)
  1. CEREZYME [Suspect]
     Active Substance: IMIGLUCERASE
     Indication: GAUCHER^S DISEASE
     Dosage: 5000 U, QOW
     Route: 042
     Dates: start: 201910

REACTIONS (2)
  - Bone pain [Unknown]
  - Joint range of motion decreased [Unknown]
